FAERS Safety Report 6329577-6 (Version None)
Quarter: 2009Q3

REPORT INFORMATION
  Report Type: 
  Country: None (occurrence: None)
  Receive Date: 20090821
  Receipt Date: 20081215
  Transmission Date: 20100115
  Serious: Yes (Death)
  Sender: FDA-Public Use
  Company Number: 2009-0020637

PATIENT
  Age: 42 Year
  Sex: Male

DRUGS (1)
  1. VISTIDE [Suspect]
     Indication: PROGRESSIVE MULTIFOCAL LEUKOENCEPHALOPATHY

REACTIONS (1)
  - DRUG INEFFECTIVE [None]
